FAERS Safety Report 6984077-5 (Version None)
Quarter: 2010Q3

REPORT INFORMATION
  Report Type: 
  Country: None (occurrence: None)
  Receive Date: 20100915
  Receipt Date: 20090515
  Transmission Date: 20110219
  Serious: No
  Sender: FDA-Public Use
  Company Number: US-WYE-H09382509

PATIENT
  Sex: Female

DRUGS (4)
  1. PRISTIQ [Suspect]
     Route: 048
  2. LAMICTAL [Concomitant]
     Indication: DEPRESSION
     Dosage: UNKNOWN
     Route: 048
  3. LAMICTAL [Concomitant]
     Indication: ANXIETY
  4. WELLBUTRIN SR [Concomitant]
     Indication: DEPRESSION
     Route: 048

REACTIONS (4)
  - BALANCE DISORDER [None]
  - DYSARTHRIA [None]
  - DYSKINESIA [None]
  - TONGUE DISORDER [None]
